FAERS Safety Report 9627302 (Version 2)
Quarter: 2013Q4

REPORT INFORMATION
  Report Type: Not Available
  Country: US (occurrence: US)
  Receive Date: 20131016
  Receipt Date: 20131016
  Transmission Date: 20140711
  Serious: Yes (Other)
  Sender: FDA-Public Use
  Company Number: US-LUNDBECK-DKLU1085360

PATIENT
  Age: 8 Month
  Sex: Male

DRUGS (8)
  1. SABRIL (FOR ORAL SOLUTION) [Suspect]
     Indication: INFANTILE SPASMS
     Route: 048
     Dates: start: 20121006
  2. SABRIL (FOR ORAL SOLUTION) [Suspect]
     Route: 048
     Dates: start: 20121006
  3. SABRIL (FOR ORAL SOLUTION) [Suspect]
     Route: 048
     Dates: start: 20121005
  4. SABRIL (FOR ORAL SOLUTION) [Suspect]
     Route: 048
     Dates: start: 20121005
  5. SABRIL (FOR ORAL SOLUTION) [Suspect]
     Route: 048
  6. ZANTAC [Concomitant]
     Indication: GASTROOESOPHAGEAL REFLUX DISEASE
  7. MIRALAX [Concomitant]
     Indication: CONSTIPATION
  8. ANTIBIOTIC [Concomitant]
     Indication: EAR INFECTION

REACTIONS (3)
  - Convulsion [Unknown]
  - Drooling [Not Recovered/Not Resolved]
  - Crying [Not Recovered/Not Resolved]
